FAERS Safety Report 6421316-3 (Version None)
Quarter: 2009Q4

REPORT INFORMATION
  Report Type: 
  Country: None (occurrence: None)
  Receive Date: 20091030
  Receipt Date: 20090929
  Transmission Date: 20100525
  Serious: No
  Sender: FDA-Public Use
  Company Number: US-BAYER-200935067NA

PATIENT
  Age: 40 Year
  Sex: Female

DRUGS (2)
  1. MIRENA [Suspect]
     Indication: MENORRHAGIA
     Dosage: CONTINUOUS
     Route: 015
  2. MIRENA [Suspect]
     Dosage: CONTINUOUS
     Route: 015
     Dates: start: 20090801, end: 20090922

REACTIONS (8)
  - ABDOMINAL PAIN [None]
  - ACNE [None]
  - BACK PAIN [None]
  - DEVICE BREAKAGE [None]
  - INFECTION [None]
  - MEDICAL DEVICE COMPLICATION [None]
  - MOOD SWINGS [None]
  - VULVOVAGINAL PAIN [None]
